FAERS Safety Report 13087573 (Version 4)
Quarter: 2017Q1

REPORT INFORMATION
  Report Type: Spontaneous
  Country: CN (occurrence: CN)
  Receive Date: 20170105
  Receipt Date: 20170124
  Transmission Date: 20170428
  Serious: Yes (Disabling)
  Sender: FDA-Public Use
  Company Number: CN-ASTRAZENECA-2016SF34232

PATIENT
  Age: 54 Year
  Sex: Male

DRUGS (10)
  1. BETALOC ZOK [Suspect]
     Active Substance: METOPROLOL SUCCINATE
     Indication: HYPERTENSION
     Route: 048
  2. BETALOC [Suspect]
     Active Substance: METOPROLOL TARTRATE
     Route: 048
     Dates: start: 201609, end: 201611
  3. BETALOC [Suspect]
     Active Substance: METOPROLOL TARTRATE
     Route: 048
  4. BETALOC ZOK [Suspect]
     Active Substance: METOPROLOL SUCCINATE
     Indication: TACHYCARDIA
     Route: 048
  5. BETALOC ZOK [Suspect]
     Active Substance: METOPROLOL SUCCINATE
     Indication: TACHYCARDIA
     Route: 048
     Dates: start: 2010
  6. BETALOC ZOK [Suspect]
     Active Substance: METOPROLOL SUCCINATE
     Indication: HYPERTENSION
     Route: 048
  7. BETALOC ZOK [Suspect]
     Active Substance: METOPROLOL SUCCINATE
     Indication: HYPERTENSION
     Route: 048
  8. BETALOC ZOK [Suspect]
     Active Substance: METOPROLOL SUCCINATE
     Indication: HYPERTENSION
     Route: 048
     Dates: start: 2010
  9. BETALOC ZOK [Suspect]
     Active Substance: METOPROLOL SUCCINATE
     Indication: TACHYCARDIA
     Route: 048
  10. BETALOC ZOK [Suspect]
     Active Substance: METOPROLOL SUCCINATE
     Indication: TACHYCARDIA
     Route: 048

REACTIONS (6)
  - Blood pressure increased [Recovering/Resolving]
  - Discomfort [Unknown]
  - Therapy cessation [Unknown]
  - Muscle atrophy [Unknown]
  - Muscular weakness [Recovering/Resolving]
  - Intentional product use issue [Unknown]
